FAERS Safety Report 13823627 (Version 1)
Quarter: 2017Q3

REPORT INFORMATION
  Report Type: Spontaneous
  Country: GB (occurrence: GB)
  Receive Date: 20170802
  Receipt Date: 20170802
  Transmission Date: 20171127
  Serious: Yes (Hospitalization, Disabling)
  Sender: FDA-Public Use
  Company Number: GB-KRKA-GB2017K0927SPO

PATIENT
  Age: 89 Year
  Sex: Female

DRUGS (16)
  1. LANSOPRAZOLE GENERIC [Suspect]
     Active Substance: LANSOPRAZOLE
     Route: 048
  2. NITRAZEPAM [Concomitant]
     Active Substance: NITRAZEPAM
  3. SALBUTAMOL [Concomitant]
     Active Substance: ALBUTEROL
     Route: 055
  4. CALCIUM AND COLECALCIFEROL [Concomitant]
  5. CANDESARTAN GENERIC (CANDESARTAN) UNKNOWN [Suspect]
     Active Substance: CANDESARTAN
     Route: 048
  6. IVABRADINE WORLD [Suspect]
     Active Substance: IVABRADINE
  7. TIOTROPIUM [Concomitant]
     Active Substance: TIOTROPIUM
  8. QUININE [Suspect]
     Active Substance: QUININE
  9. ISPAGHULA EXTRACT\PSYLLIUM [Concomitant]
     Active Substance: PLANTAGO OVATA SEED\PLANTAGO SEED
  10. MIRABEGRON [Concomitant]
     Active Substance: MIRABEGRON
  11. PARACETAMOL [Concomitant]
     Active Substance: ACETAMINOPHEN
  12. FUROSEMIDE. [Suspect]
     Active Substance: FUROSEMIDE
  13. SIMVASTATIN. [Concomitant]
     Active Substance: SIMVASTATIN
  14. SERETIDE [Concomitant]
     Active Substance: FLUTICASONE PROPIONATE\SALMETEROL XINAFOATE
     Route: 055
  15. OXYBUTYNIN CHLORIDE. [Concomitant]
     Active Substance: OXYBUTYNIN CHLORIDE
  16. RIVAROXABAN [Concomitant]
     Active Substance: RIVAROXABAN

REACTIONS (6)
  - Electrocardiogram QT prolonged [Unknown]
  - Blood sodium decreased [Unknown]
  - Hyponatraemia [None]
  - Syncope [None]
  - Hypokalaemia [Unknown]
  - Fall [Unknown]
